FAERS Safety Report 9316960 (Version 3)
Quarter: 2013Q3

REPORT INFORMATION
  Report Type: Report from Study
  Country: TR (occurrence: TR)
  Receive Date: 20130530
  Receipt Date: 20130719
  Transmission Date: 20140515
  Serious: Yes (Hospitalization)
  Sender: FDA-Public Use
  Company Number: TR-ROCHE-1230426

PATIENT
  Age: 75 Year
  Sex: Female

DRUGS (1)
  1. XELODA [Suspect]
     Indication: COLON CANCER
     Route: 048
     Dates: start: 20130413, end: 201304

REACTIONS (6)
  - Intestinal obstruction [Recovered/Resolved]
  - Small intestinal perforation [Recovered/Resolved]
  - Abdominal infection [Recovered/Resolved]
  - Arrhythmia [Not Recovered/Not Resolved]
  - Abasia [Not Recovered/Not Resolved]
  - Decubitus ulcer [Not Recovered/Not Resolved]
